FAERS Safety Report 7637077-6 (Version None)
Quarter: 2011Q3

REPORT INFORMATION
  Report Type: 
  Country: None (occurrence: None)
  Receive Date: 20110722
  Receipt Date: 20110722
  Transmission Date: 20111222
  Serious: Yes (Hospitalization)
  Sender: FDA-Public Use
  Company Number: None

PATIENT
  Age: 74 Year
  Sex: Male
  Weight: 92.9874 kg

DRUGS (1)
  1. SIMVASTATIN [Suspect]
     Indication: BLOOD CHOLESTEROL INCREASED
     Dosage: 1 TAB DAILY ORAL
     Route: 048
     Dates: start: 20080101

REACTIONS (6)
  - HAEMORRHAGE [None]
  - FATIGUE [None]
  - OEDEMA PERIPHERAL [None]
  - MUSCULAR WEAKNESS [None]
  - RASH MACULAR [None]
  - VASCULITIS [None]
